FAERS Safety Report 5027315-0 (Version None)
Quarter: 2006Q2

REPORT INFORMATION
  Report Type: 
  Country: None (occurrence: None)
  Receive Date: 20060612
  Receipt Date: 20060602
  Transmission Date: 20061013
  Serious: Yes (Other)
  Sender: FDA-Public Use
  Company Number: S06-USA-02126-01

PATIENT
  Age: 57 Year
  Sex: Female

DRUGS (8)
  1. LEVOTHROID [Suspect]
     Indication: HYPOTHYROIDISM
     Dosage: 300 MCG QD PO
     Route: 048
     Dates: start: 20030101, end: 20050101
  2. LEVOTHROID [Suspect]
     Indication: HYPOTHYROIDISM
     Dosage: 300 MCG QD PO
     Route: 048
     Dates: start: 20050101, end: 20060522
  3. LEVOTHROID [Suspect]
     Indication: HYPOTHYROIDISM
     Dosage: 500 MCG QD PO
     Route: 048
     Dates: start: 20030101, end: 20030101
  4. PHENOBARBITAL [Suspect]
  5. METHOTREXATE [Concomitant]
  6. VOLTAREN [Concomitant]
  7. ENBREL [Concomitant]
  8. MEPHOBARBITAL [Concomitant]

REACTIONS (10)
  - BLOOD THYROID STIMULATING HORMONE ABNORMAL [None]
  - BLOOD THYROID STIMULATING HORMONE INCREASED [None]
  - CONDITION AGGRAVATED [None]
  - DEPRESSION [None]
  - DRUG INEFFECTIVE [None]
  - FATIGUE [None]
  - HYPERSOMNIA [None]
  - PHARMACEUTICAL PRODUCT COMPLAINT [None]
  - POOR QUALITY DRUG ADMINISTERED [None]
  - RHEUMATOID ARTHRITIS [None]
